FAERS Safety Report 6074506-6 (Version None)
Quarter: 2009Q1

REPORT INFORMATION
  Report Type: 
  Country: None (occurrence: None)
  Receive Date: 20090206
  Receipt Date: 20090113
  Transmission Date: 20090719
  Serious: Yes (Hospitalization)
  Sender: FDA-Public Use
  Company Number: 230017K09GRC

PATIENT
  Age: 39 Year
  Sex: Female

DRUGS (1)
  1. REBIF [Suspect]
     Dates: start: 20080501, end: 20090101

REACTIONS (4)
  - COLECTOMY [None]
  - COLOSTOMY [None]
  - CONSTIPATION [None]
  - HYSTERECTOMY [None]
